FAERS Safety Report 10232316 (Version 1)
Quarter: 2014Q2

REPORT INFORMATION
  Report Type: Report from Study
  Country: AU (occurrence: AU)
  Receive Date: 20140612
  Receipt Date: 20140612
  Transmission Date: 20141212
  Serious: Yes (Other)
  Sender: FDA-Public Use
  Company Number: AU-AMGEN-AUSCT2014041758

PATIENT
  Age: 73 Year
  Sex: Male

DRUGS (5)
  1. DENOSUMAB [Suspect]
     Indication: PLASMA CELL MYELOMA
     Dosage: 120 MG, UNK
     Route: 065
     Dates: start: 20120720
  2. AUGMENTIN DUO [Concomitant]
     Dosage: UNK
     Dates: start: 201305
  3. CHLORHEXIDINE [Concomitant]
     Dosage: UNK
     Route: 061
     Dates: start: 20130809
  4. METRONIDAZOLE [Concomitant]
     Dosage: UNK
     Dates: start: 20130704
  5. SAVACOL [Concomitant]
     Dosage: UNK
     Dates: start: 20130704

REACTIONS (1)
  - Pain in jaw [Unknown]
